FAERS Safety Report 9648232 (Version 1)
Quarter: 2013Q4

REPORT INFORMATION
  Report Type: Spontaneous
  Country: FR (occurrence: FR)
  Receive Date: 20131028
  Receipt Date: 20131028
  Transmission Date: 20140711
  Serious: Yes (Other)
  Sender: FDA-Public Use
  Company Number: PHHY2013FR120794

PATIENT
  Age: 54 Year
  Sex: Female

DRUGS (2)
  1. ZOMETA [Suspect]
     Indication: METASTASES TO BONE
     Dosage: UNK UKN, UNK
     Route: 042
     Dates: start: 201203, end: 201210
  2. XGEVA [Suspect]
     Indication: METASTASES TO BONE
     Dosage: 120 MG, ONE EVERY 4 WEEKS
     Route: 058
     Dates: start: 201304, end: 201305

REACTIONS (1)
  - Osteonecrosis of jaw [Not Recovered/Not Resolved]
